FAERS Safety Report 13162862 (Version 8)
Quarter: 2017Q2

REPORT INFORMATION
  Report Type: Spontaneous
  Country: US (occurrence: US)
  Receive Date: 20170130
  Receipt Date: 20170605
  Transmission Date: 20170830
  Serious: Yes (Congenital Anomaly, Other)
  Sender: FDA-Public Use
  Company Number: PHEH2017US002979

PATIENT
  Sex: Male

DRUGS (1)
  1. ZOFRAN [Suspect]
     Active Substance: ONDANSETRON HYDROCHLORIDE
     Indication: FOETAL EXPOSURE DURING PREGNANCY
     Dosage: MOTHER DOSE: 4 MG
     Route: 064

REACTIONS (41)
  - Choking [Unknown]
  - Respiratory syncytial virus infection [Unknown]
  - Myoclonus [Unknown]
  - Snoring [Unknown]
  - Tonsillitis [Unknown]
  - Wheezing [Unknown]
  - Pyrexia [Unknown]
  - Upper respiratory tract infection [Unknown]
  - Anaemia neonatal [Unknown]
  - Petechiae [Unknown]
  - Ear infection [Unknown]
  - Otitis media acute [Unknown]
  - Neonatal respiratory distress syndrome [Unknown]
  - Hypoxia [Unknown]
  - Injury [Unknown]
  - Tonsillar hypertrophy [Unknown]
  - Otorrhoea [Unknown]
  - Craniosynostosis [Unknown]
  - Neonatal respiratory failure [Unknown]
  - Sympathetic posterior cervical syndrome [Unknown]
  - Nasopharyngitis [Unknown]
  - Rhinorrhoea [Unknown]
  - Skull malformation [Unknown]
  - Otitis media chronic [Unknown]
  - Gastrointestinal sounds abnormal [Unknown]
  - Cough [Unknown]
  - Ear pain [Unknown]
  - Impetigo [Unknown]
  - Dysmorphism [Unknown]
  - Weight decrease neonatal [Unknown]
  - Dysphagia [Unknown]
  - Exanthema subitum [Unknown]
  - Constipation [Unknown]
  - Bronchiolitis [Unknown]
  - Conjunctivitis bacterial [Unknown]
  - Foetal exposure during pregnancy [Unknown]
  - Pain [Unknown]
  - Diarrhoea neonatal [Unknown]
  - Gastrooesophageal reflux disease [Unknown]
  - Sleep apnoea syndrome [Unknown]
  - Speech disorder [Unknown]
